FAERS Safety Report 7530355-0 (Version None)
Quarter: 2011Q2

REPORT INFORMATION
  Report Type: 
  Country: None (occurrence: None)
  Receive Date: 20110607
  Receipt Date: 20110524
  Transmission Date: 20111010
  Serious: Yes (Hospitalization)
  Sender: FDA-Public Use
  Company Number: GB-UCBSA-028933

PATIENT
  Sex: Female

DRUGS (3)
  1. ACETAMINOPHEN [Concomitant]
     Indication: PAIN
     Dosage: ONCE DAILY OR 4 TIMES A DAY (VARIABLE)
     Route: 048
  2. CALCIUM AND VITAMIN D [Concomitant]
     Indication: OSTEOPENIA
     Route: 048
  3. CIMZIA [Suspect]
     Indication: RHEUMATOID ARTHRITIS
     Route: 058
     Dates: start: 20100901, end: 20101201

REACTIONS (9)
  - PLEURAL EFFUSION [None]
  - INTERSTITIAL LUNG DISEASE [None]
  - PRURITUS [None]
  - PYREXIA [None]
  - NASOPHARYNGITIS [None]
  - C-REACTIVE PROTEIN INCREASED [None]
  - HEADACHE [None]
  - STAPHYLOCOCCAL SEPSIS [None]
  - PAIN [None]
